FAERS Safety Report 19698706 (Version 1)
Quarter: 2021Q3

REPORT INFORMATION
  Report Type: Report from Study
  Country: CO (occurrence: CO)
  Receive Date: 20210813
  Receipt Date: 20210813
  Transmission Date: 20211014
  Serious: Yes (Other)
  Sender: FDA-Public Use
  Company Number: CO-JNJFOC-20200640180

PATIENT
  Age: 65 Year
  Sex: Female
  Weight: 66 kg

DRUGS (18)
  1. SIMPONI [Suspect]
     Active Substance: GOLIMUMAB
     Route: 058
     Dates: start: 20200704
  2. METFORMINE [Concomitant]
     Active Substance: METFORMIN HYDROCHLORIDE
     Indication: PRODUCT USED FOR UNKNOWN INDICATION
     Route: 065
  3. METOTREXATE [Concomitant]
     Active Substance: METHOTREXATE SODIUM
     Indication: PRODUCT USED FOR UNKNOWN INDICATION
     Route: 065
  4. SIMPONI [Suspect]
     Active Substance: GOLIMUMAB
     Dosage: LAST APPLICATION OF GOLIMUMAB ON 04?JUL?2020, DATE OF LAST APPLICATION: (03/OCT/2020)
     Route: 058
     Dates: start: 20151102
  5. SIMPONI [Suspect]
     Active Substance: GOLIMUMAB
     Route: 058
     Dates: start: 20201117
  6. SIMPONI [Suspect]
     Active Substance: GOLIMUMAB
     Dosage: LAST DOSE: 18?MAR?2021
     Route: 058
     Dates: start: 20151103
  7. PREGABALIN. [Concomitant]
     Active Substance: PREGABALIN
     Indication: PRODUCT USED FOR UNKNOWN INDICATION
     Route: 065
  8. SIMPONI [Suspect]
     Active Substance: GOLIMUMAB
     Route: 058
     Dates: start: 20200702
  9. PARACETAMOL [Concomitant]
     Active Substance: ACETAMINOPHEN
     Indication: PRODUCT USED FOR UNKNOWN INDICATION
     Route: 065
  10. TIROXIN                            /00068002/ [Concomitant]
     Indication: PRODUCT USED FOR UNKNOWN INDICATION
     Route: 065
  11. HIDROCLOROTIAZIDE [Concomitant]
     Active Substance: HYDROCHLOROTHIAZIDE
  12. SIMPONI [Suspect]
     Active Substance: GOLIMUMAB
     Indication: RHEUMATOID ARTHRITIS
     Dosage: LAST APPLICATION OF GOLIMUMAB ON 18?MAR?2021
     Route: 058
     Dates: start: 20151103
  13. SIMPONI [Suspect]
     Active Substance: GOLIMUMAB
     Dosage: LAST DOSE: 18?MAR?2021
     Route: 058
     Dates: start: 20210723
  14. CODEINE [Concomitant]
     Active Substance: CODEINE
     Indication: PRODUCT USED FOR UNKNOWN INDICATION
     Route: 065
  15. LOSARTAN. [Concomitant]
     Active Substance: LOSARTAN
     Indication: PRODUCT USED FOR UNKNOWN INDICATION
     Dosage: LOSARTAN DOSE WAS ALSO CHANGED BECAUSE SHE HAS THE SUGAR UNCONTROLLED.
     Route: 065
  16. ACETAMINOPHEN + HYDROCODONE [Concomitant]
     Active Substance: ACETAMINOPHEN\HYDROCODONE
  17. VERSATIS [Concomitant]
     Active Substance: LIDOCAINE
     Dosage: PATCHES.
  18. GABAPENTIN. [Concomitant]
     Active Substance: GABAPENTIN
     Indication: PRODUCT USED FOR UNKNOWN INDICATION
     Route: 065

REACTIONS (34)
  - Dizziness [Recovering/Resolving]
  - Bone pain [Recovering/Resolving]
  - Appetite disorder [Not Recovered/Not Resolved]
  - Spinal disorder [Not Recovered/Not Resolved]
  - Pain [Not Recovered/Not Resolved]
  - Syncope [Not Recovered/Not Resolved]
  - Skull fracture [Not Recovered/Not Resolved]
  - Tachycardia [Recovering/Resolving]
  - Blood glucose fluctuation [Not Recovered/Not Resolved]
  - Hypoaesthesia [Not Recovered/Not Resolved]
  - Alopecia [Not Recovered/Not Resolved]
  - Crying [Not Recovered/Not Resolved]
  - Headache [Unknown]
  - Crying [Unknown]
  - Illness [Unknown]
  - Fall [Not Recovered/Not Resolved]
  - Vision blurred [Recovering/Resolving]
  - Stress [Not Recovered/Not Resolved]
  - Chest discomfort [Not Recovered/Not Resolved]
  - Urticaria [Unknown]
  - Pyrexia [Not Recovered/Not Resolved]
  - Cough [Recovering/Resolving]
  - Burning sensation [Recovered/Resolved]
  - Blister [Not Recovered/Not Resolved]
  - Illness [Not Recovered/Not Resolved]
  - Gastritis [Recovering/Resolving]
  - Insomnia [Not Recovered/Not Resolved]
  - Oropharyngeal pain [Recovering/Resolving]
  - SARS-CoV-2 test positive [Not Recovered/Not Resolved]
  - Intervertebral disc protrusion [Not Recovered/Not Resolved]
  - Nasopharyngitis [Recovering/Resolving]
  - Amnesia [Unknown]
  - Chest X-ray abnormal [Unknown]
  - Ocular hyperaemia [Unknown]

NARRATIVE: CASE EVENT DATE: 20200319
